FAERS Safety Report 19864328 (Version 1)
Quarter: 2021Q3

REPORT INFORMATION
  Report Type: Spontaneous
  Country: US (occurrence: US)
  Receive Date: 20210921
  Receipt Date: 20210921
  Transmission Date: 20211014
  Serious: No
  Sender: FDA-Public Use
  Company Number: US-PERRIGO-21US006024

PATIENT
  Sex: Female
  Weight: 72.56 kg

DRUGS (1)
  1. NYSTOP [Suspect]
     Active Substance: NYSTATIN
     Indication: PRODUCT USED FOR UNKNOWN INDICATION
     Dosage: UNKNOWN, UNKNOWN
     Route: 061
     Dates: end: 202104

REACTIONS (4)
  - Application site swelling [Unknown]
  - Application site pain [Unknown]
  - Application site erythema [Unknown]
  - Application site pruritus [Unknown]
